FAERS Safety Report 17423484 (Version 1)
Quarter: 2020Q1

REPORT INFORMATION
  Report Type: Spontaneous
  Country: GB (occurrence: GB)
  Receive Date: 20200217
  Receipt Date: 20200217
  Transmission Date: 20200409
  Serious: No
  Sender: FDA-Public Use
  Company Number: GB-ALKEM LABORATORIES LIMITED-GB-ALKEM-2019-00478

PATIENT
  Age: 64 Year
  Sex: Female
  Weight: 64 kg

DRUGS (15)
  1. FENBID [Concomitant]
     Active Substance: IBUPROFEN
     Indication: ILL-DEFINED DISORDER
     Dosage: APPLY 3 TIMES/DAY ()
     Route: 065
     Dates: start: 20181024, end: 20181107
  2. DOXYCYCLINE. [Concomitant]
     Active Substance: DOXYCYCLINE
     Indication: ILL-DEFINED DISORDER
     Dosage: TWO NOW THEN ONE DAILY ()
     Route: 065
     Dates: start: 20181211, end: 20181218
  3. SODIUM CROMOGLICATE [Concomitant]
     Active Substance: CROMOLYN SODIUM
     Indication: ILL-DEFINED DISORDER
     Dosage: ONE DROP 4 TIMES/DAY ()
     Route: 065
     Dates: start: 20181024, end: 20181107
  4. RANITIDINE. [Concomitant]
     Active Substance: RANITIDINE
     Indication: ILL-DEFINED DISORDER
     Dosage: TAKE ONE TWICE DAILY ()
     Route: 065
     Dates: start: 20181119, end: 20181219
  5. LAXIDO [Concomitant]
     Active Substance: POLYETHYLENE GLYCOL 3350\POTASSIUM CHLORIDE\SODIUM BICARBONATE\SODIUM CHLORIDE
     Indication: ILL-DEFINED DISORDER
     Dosage: 1 BD PRN ()
     Route: 065
     Dates: start: 20181219
  6. SODIUM PICOSULFATE [Concomitant]
     Active Substance: SODIUM PICOSULFATE
     Indication: ILL-DEFINED DISORDER
     Dosage: 10-20ML AT NIGHT ()
     Route: 065
     Dates: start: 20181024, end: 20181121
  7. CLARITHROMYCIN. [Concomitant]
     Active Substance: CLARITHROMYCIN
     Indication: ILL-DEFINED DISORDER
     Dosage: TAKE ONE EVERY 12 HRS ()
     Route: 065
     Dates: start: 20181214, end: 20181221
  8. PARACETAMOL [Concomitant]
     Active Substance: ACETAMINOPHEN
     Indication: ILL-DEFINED DISORDER
     Dosage: TWO TO BE TAKEN UP TO FOUR TIMES A DAY ()
     Route: 065
     Dates: start: 20171218
  9. CEPHALEXIN. [Suspect]
     Active Substance: CEPHALEXIN
     Indication: PRODUCT USED FOR UNKNOWN INDICATION
     Dosage: UNK
     Route: 065
     Dates: start: 20181217
  10. FLUOXETINE [Concomitant]
     Active Substance: FLUOXETINE HYDROCHLORIDE
     Indication: ILL-DEFINED DISORDER
     Dosage: TWO TO BE TAKEN DAILY ()
     Route: 065
     Dates: start: 20171218
  11. PROCHLORPERAZINE. [Concomitant]
     Active Substance: PROCHLORPERAZINE
     Indication: ILL-DEFINED DISORDER
     Dosage: TAKE ONE THREE TIMES DAILY ()
     Route: 065
     Dates: start: 20181219
  12. QUININE [Concomitant]
     Active Substance: QUININE
     Indication: ILL-DEFINED DISORDER
     Dosage: TAKE ONE AT NIGHT WHEN REQUIRED ()
     Route: 065
     Dates: start: 20171218
  13. PROPRANOLOL [Concomitant]
     Active Substance: PROPRANOLOL HYDROCHLORIDE
     Indication: ILL-DEFINED DISORDER
     Dosage: TAKE ONE 2 TIMES/DAY ()
     Route: 065
     Dates: start: 20181121
  14. LANSOPRAZOLE. [Concomitant]
     Active Substance: LANSOPRAZOLE
     Indication: ILL-DEFINED DISORDER
     Dosage: 1 ONCE DAILY ()
     Route: 065
     Dates: start: 20171218
  15. ROSUVASTATIN. [Concomitant]
     Active Substance: ROSUVASTATIN
     Indication: ILL-DEFINED DISORDER
     Dosage: TAKE ONE DAILY ()
     Route: 065
     Dates: start: 20180427

REACTIONS (1)
  - Rash pruritic [Recovered/Resolved]

NARRATIVE: CASE EVENT DATE: 20181221
